FAERS Safety Report 22650171 (Version 1)
Quarter: 2023Q2

REPORT INFORMATION
  Report Type: Spontaneous
  Country: US (occurrence: None)
  Receive Date: 20230627
  Receipt Date: 20230627
  Transmission Date: 20230722
  Serious: Yes (Hospitalization)
  Sender: FDA-Public Use
  Company Number: None

PATIENT
  Sex: Female

DRUGS (1)
  1. AUSTEDO [Suspect]
     Active Substance: DEUTETRABENAZINE
     Dosage: OTHER QUANTITY : 18MG AM - 12MG PM;?FREQUENCY : TWICE A DAY;?
     Route: 048

REACTIONS (3)
  - Urinary tract infection [None]
  - Clostridium difficile infection [None]
  - Anxiety [None]
